FAERS Safety Report 6501791-6 (Version None)
Quarter: 2009Q4

REPORT INFORMATION
  Report Type: 
  Country: None (occurrence: None)
  Receive Date: 20091203
  Receipt Date: 20091124
  Transmission Date: 20100525
  Serious: Yes (Other)
  Sender: FDA-Public Use
  Company Number: 09US005320

PATIENT
  Age: 38 Year
  Sex: Female
  Weight: 86.2 kg

DRUGS (2)
  1. TIOCONAZOLE [Suspect]
     Indication: FUNGAL INFECTION
     Dosage: 1 APPLICATION, SINGLE, TOPICAL
     Route: 061
     Dates: start: 20091123, end: 20091123
  2. MULTIVITAMIN (VITAMIN NOS) [Concomitant]

REACTIONS (10)
  - CHILLS [None]
  - DIZZINESS [None]
  - FEELING OF BODY TEMPERATURE CHANGE [None]
  - FUNGAL INFECTION [None]
  - HEADACHE [None]
  - HYPERSENSITIVITY [None]
  - PAIN [None]
  - PALPITATIONS [None]
  - VAGINAL SWELLING [None]
  - VULVOVAGINAL PAIN [None]
